FAERS Safety Report 6545795-6 (Version None)
Quarter: 2010Q1

REPORT INFORMATION
  Report Type: 
  Country: None (occurrence: None)
  Receive Date: 20100114
  Receipt Date: 20090705
  Transmission Date: 20100710
  Serious: No
  Sender: FDA-Public Use
  Company Number: 2009BM000150

PATIENT
  Age: 49 Year
  Sex: Female
  Weight: 112.7642 kg

DRUGS (9)
  1. KUVAN [Suspect]
     Indication: PHENYLKETONURIA
     Dosage: 23 TAB;QD;PO
     Route: 048
     Dates: start: 20090629, end: 20090728
  2. LEXAPRO [Concomitant]
  3. PREVACID [Concomitant]
  4. CARAFATE [Concomitant]
  5. SEROQUEL [Concomitant]
  6. CALCIUM [Concomitant]
  7. ASPIRIN [Concomitant]
  8. AZOPT [Concomitant]
  9. TYLENOL-500 [Concomitant]

REACTIONS (5)
  - AGITATION [None]
  - FATIGUE [None]
  - GLAUCOMA [None]
  - HUNGER [None]
  - VISUAL ACUITY REDUCED [None]
